FAERS Safety Report 10213730 (Version 1)
Quarter: 2014Q2

REPORT INFORMATION
  Report Type: Spontaneous
  Country: US (occurrence: US)
  Receive Date: 20140603
  Receipt Date: 20140603
  Transmission Date: 20141212
  Serious: No
  Sender: FDA-Public Use
  Company Number: US-TEVA-483624USA

PATIENT
  Sex: Male
  Weight: 124.85 kg

DRUGS (7)
  1. TREANDA [Suspect]
     Indication: NON-HODGKIN^S LYMPHOMA
  2. RITUXAN [Concomitant]
     Indication: NON-HODGKIN^S LYMPHOMA
  3. NEULASTA [Concomitant]
     Indication: WHITE BLOOD CELL COUNT
  4. XFORGE [Concomitant]
     Indication: HYPERTENSION
  5. VALACYCLOVIR [Concomitant]
     Indication: HERPES ZOSTER
  6. ALLOPURINOL [Concomitant]
  7. FLOMAX [Concomitant]
     Indication: BENIGN PROSTATIC HYPERPLASIA

REACTIONS (5)
  - Neuralgia [Not Recovered/Not Resolved]
  - Back pain [Not Recovered/Not Resolved]
  - Pain [Not Recovered/Not Resolved]
  - Discomfort [Not Recovered/Not Resolved]
  - Inflammation [Unknown]
